FAERS Safety Report 9476097 (Version 1)
Quarter: 2013Q3

REPORT INFORMATION
  Report Type: Spontaneous
  Country: FR (occurrence: None)
  Receive Date: 20130821
  Receipt Date: 20130821
  Transmission Date: 20140515
  Serious: Yes (Life-Threatening, Hospitalization)
  Sender: FDA-Public Use
  Company Number: 1783541

PATIENT
  Age: 74 Year
  Sex: Male

DRUGS (6)
  1. ATRACURIUM BESILATE [Suspect]
     Indication: PRODUCT USED FOR UNKNOWN INDICATION
     Dates: start: 20120809, end: 20120809
  2. SPASFON/00765801 [Concomitant]
  3. AZANTAC [Concomitant]
  4. FLAGYL/00012501/(FLAGYL-METRONIDAZOLE) [Concomitant]
  5. TAZOCILLINE [Concomitant]
  6. SALINE /00075401/ [Concomitant]

REACTIONS (8)
  - Respiratory distress [None]
  - Paralysis [None]
  - Areflexia [None]
  - Hypovolaemic shock [None]
  - Coma [None]
  - Hypertension [None]
  - Lactic acidosis [None]
  - Brain scan abnormal [None]
